FAERS Safety Report 6446854-9 (Version None)
Quarter: 2009Q4

REPORT INFORMATION
  Report Type: 
  Country: None (occurrence: None)
  Receive Date: 20091119
  Receipt Date: 20091109
  Transmission Date: 20100525
  Serious: Yes (Hospitalization, Other)
  Sender: FDA-Public Use
  Company Number: PT-BRISTOL-MYERS SQUIBB COMPANY-14839708

PATIENT
  Age: 3 Decade
  Sex: Male

DRUGS (4)
  1. EFAVIRENZ [Suspect]
  2. STAVUDINE [Suspect]
  3. TENOFOVIR DISOPROXIL FUMARATE [Suspect]
  4. LOPINAVIR AND RITONAVIR [Suspect]

REACTIONS (3)
  - CORONARY ARTERY OCCLUSION [None]
  - LIPODYSTROPHY ACQUIRED [None]
  - MYOCARDIAL INFARCTION [None]
